FAERS Safety Report 12242821 (Version 1)
Quarter: 2016Q2

REPORT INFORMATION
  Report Type: Spontaneous
  Country: US (occurrence: US)
  Receive Date: 20160406
  Receipt Date: 20160406
  Transmission Date: 20160815
  Serious: Yes (Hospitalization)
  Sender: FDA-Public Use
  Company Number: US-ABBVIE-16P-163-1594736-00

PATIENT
  Age: 63 Year
  Sex: Female
  Weight: 81.72 kg

DRUGS (4)
  1. TIROSINT [Suspect]
     Active Substance: LEVOTHYROXINE SODIUM
     Dosage: 100 MCG MONDAY THROUGH FRIDAY; 88 MCG SATURDAY AND SUNDAY
     Route: 048
     Dates: start: 2015
  2. SYNTHROID [Suspect]
     Active Substance: LEVOTHYROXINE SODIUM
     Indication: HYPOTHYROIDISM
     Route: 048
     Dates: start: 201404, end: 201404
  3. TIROSINT [Suspect]
     Active Substance: LEVOTHYROXINE SODIUM
     Indication: HYPOTHYROIDISM
     Route: 048
     Dates: start: 2014, end: 201404
  4. TIROSINT [Suspect]
     Active Substance: LEVOTHYROXINE SODIUM
     Route: 048
     Dates: start: 201404, end: 2015

REACTIONS (8)
  - Weight decreased [Unknown]
  - Drug hypersensitivity [Unknown]
  - Drug level changed [Unknown]
  - Adverse drug reaction [Unknown]
  - Coronary artery occlusion [Unknown]
  - Cardiac flutter [Unknown]
  - Blood pressure increased [Unknown]
  - Asthma [Unknown]
